FAERS Safety Report 26147269 (Version 1)
Quarter: 2025Q4

REPORT INFORMATION
  Report Type: Spontaneous
  Country: EU (occurrence: EU)
  Receive Date: 20251211
  Receipt Date: 20251211
  Transmission Date: 20260118
  Serious: Yes (Hospitalization)
  Sender: NOVARTIS
  Company Number: None

PATIENT
  Age: 60 Year
  Sex: Male

DRUGS (1)
  1. KYMRIAH [Suspect]
     Active Substance: TISAGENLECLEUCEL
     Indication: Follicular lymphoma
     Dosage: 1 DOSAGE FORM, ONCE/SINGLE (1,2 X 106 - 6 X 108 CELLULES, DISPERSION POUR PERFUSION)
     Route: 042
     Dates: start: 20220523, end: 20220523

REACTIONS (4)
  - Cytokine release syndrome [Recovered/Resolved]
  - Bacterial infection [Recovered/Resolved]
  - Deep vein thrombosis [Unknown]
  - Pulmonary embolism [Unknown]

NARRATIVE: CASE EVENT DATE: 20220524
